FAERS Safety Report 5313760-2 (Version None)
Quarter: 2007Q2

REPORT INFORMATION
  Report Type: 
  Country: None (occurrence: None)
  Receive Date: 20070426
  Receipt Date: 20070417
  Transmission Date: 20071010
  Serious: Yes (Hospitalization)
  Sender: FDA-Public Use
  Company Number: 2007SP007305

PATIENT
  Age: 57 Year
  Sex: Male

DRUGS (2)
  1. PEG-INTRON [Suspect]
     Indication: HEPATITIS C
     Dosage: 100 MCG, QW; SC
     Route: 058
     Dates: start: 20060814, end: 20070313
  2. REBETOL [Suspect]
     Indication: HEPATITIS C
     Dosage: 400 MG, QD; PO
     Route: 048
     Dates: start: 20060814, end: 20070212

REACTIONS (4)
  - ERYTHEMA [None]
  - FLUID RETENTION [None]
  - INJECTION SITE PAIN [None]
  - SWELLING [None]
